FAERS Safety Report 8994699 (Version 1)
Quarter: 2012Q4

REPORT INFORMATION
  Report Type: Spontaneous
  Country: US (occurrence: None)
  Receive Date: 20121228
  Receipt Date: 20121228
  Transmission Date: 20130627
  Serious: Yes (Other)
  Sender: FDA-Public Use
  Company Number: None

PATIENT
  Age: 55 Year
  Sex: Female
  Weight: 83.92 kg

DRUGS (2)
  1. NUCYNTA [Suspect]
     Indication: DIABETIC NEUROPATHY
     Dates: start: 20121104, end: 20121226
  2. NUCYNTA [Suspect]

REACTIONS (10)
  - Pain in extremity [None]
  - Pruritus [None]
  - Dizziness [None]
  - Urinary retention [None]
  - Decreased activity [None]
  - Chromaturia [None]
  - Haemorrhage urinary tract [None]
  - Urinary tract infection [None]
  - Bladder pain [None]
  - Renal pain [None]
